FAERS Safety Report 6202455-9 (Version None)
Quarter: 2009Q2

REPORT INFORMATION
  Report Type: 
  Country: None (occurrence: None)
  Receive Date: 20090526
  Receipt Date: 20090515
  Transmission Date: 20091009
  Serious: Yes (Death, Other)
  Sender: FDA-Public Use
  Company Number: US-PFIZER INC-2009186900

PATIENT
  Sex: Male

DRUGS (3)
  1. CAMPTOSAR [Suspect]
     Dosage: UNK
     Dates: start: 20071201, end: 20080901
  2. FLUOROURACIL [Concomitant]
     Dosage: UNK
     Dates: start: 20071101, end: 20080901
  3. LEUCOVORIN CALCIUM [Concomitant]
     Dosage: UNK
     Dates: start: 20071101, end: 20080901

REACTIONS (3)
  - DEATH [None]
  - DISEASE PROGRESSION [None]
  - NEOPLASM MALIGNANT [None]
